FAERS Safety Report 8592517-3 (Version None)
Quarter: 2012Q3

REPORT INFORMATION
  Report Type: 
  Country: None (occurrence: None)
  Receive Date: 20120814
  Receipt Date: 20120810
  Transmission Date: 20120928
  Serious: Yes (Other)
  Sender: FDA-Public Use
  Company Number: PHHY2012MX070058

PATIENT
  Sex: Male

DRUGS (2)
  1. ZOMETA [Suspect]
     Indication: OSTEOPOROSIS
     Dosage: 1 DF, MONTH
     Route: 042
     Dates: start: 20070801
  2. TRAMADOL HCL [Concomitant]
     Indication: PAIN
     Dosage: 1 DF, QD

REACTIONS (3)
  - LUMBAR VERTEBRAL FRACTURE [None]
  - PAIN [None]
  - GASTRIC DISORDER [None]
